FAERS Safety Report 18214444 (Version 2)
Quarter: 2020Q3

REPORT INFORMATION
  Report Type: Spontaneous
  Country: US (occurrence: US)
  Receive Date: 20200831
  Receipt Date: 20200904
  Transmission Date: 20201103
  Serious: Yes (Death, Other)
  Sender: FDA-Public Use
  Company Number: US-ASTRAZENECA-2020SF10136

PATIENT
  Age: 95 Year
  Sex: Male
  Weight: 64.4 kg

DRUGS (7)
  1. MYRBETRIQ [Concomitant]
     Active Substance: MIRABEGRON
     Dosage: UNK
  2. OLAPARIB. [Suspect]
     Active Substance: OLAPARIB
     Indication: PROSTATE CANCER METASTATIC
     Dosage: HALF DOSE OF 150MG TWICE A DAY
     Route: 048
     Dates: start: 20200717
  3. REMERON [Concomitant]
     Active Substance: MIRTAZAPINE
     Dosage: UNK
     Route: 048
  4. AMLODIPINE [Concomitant]
     Active Substance: AMLODIPINE BESYLATE
     Dosage: UNK
  5. LORATADINE. [Concomitant]
     Active Substance: LORATADINE
     Dosage: UNK
  6. LEVETIRACETAM. [Concomitant]
     Active Substance: LEVETIRACETAM
     Dosage: UNK
  7. OXYBUTYNIN. [Concomitant]
     Active Substance: OXYBUTYNIN CHLORIDE
     Dosage: UNK

REACTIONS (3)
  - Off label use [Unknown]
  - Prostate cancer [Fatal]
  - Adverse event [Not Recovered/Not Resolved]

NARRATIVE: CASE EVENT DATE: 2020
